FAERS Safety Report 14044371 (Version 1)
Quarter: 2017Q4

REPORT INFORMATION
  Report Type: Spontaneous
  Country: IL (occurrence: IL)
  Receive Date: 20171004
  Receipt Date: 20171004
  Transmission Date: 20180321
  Serious: Yes (Other)
  Sender: FDA-Public Use
  Company Number: IL-TEVA-810527ACC

PATIENT
  Age: 47 Year
  Sex: Female

DRUGS (2)
  1. PALBOCICLIB [Suspect]
     Active Substance: PALBOCICLIB
     Indication: BREAST CANCER
     Dates: start: 201312, end: 201701
  2. LETROZOLE. [Suspect]
     Active Substance: LETROZOLE
     Indication: BREAST CANCER
     Dates: start: 201312, end: 201701

REACTIONS (5)
  - Fatigue [Unknown]
  - Abdominal discomfort [Unknown]
  - Dry skin [Unknown]
  - Disease progression [Unknown]
  - Impaired healing [Unknown]

NARRATIVE: CASE EVENT DATE: 201701
